FAERS Safety Report 19459374 (Version 2)
Quarter: 2021Q3

REPORT INFORMATION
  Report Type: Spontaneous
  Country: IN (occurrence: IN)
  Receive Date: 20210624
  Receipt Date: 20210701
  Transmission Date: 20211014
  Serious: Yes (Hospitalization)
  Sender: FDA-Public Use
  Company Number: IN-PFIZER INC-2021283048

PATIENT
  Age: 79 Year
  Sex: Male
  Weight: 42 kg

DRUGS (7)
  1. DACOMITINIB [Suspect]
     Active Substance: DACOMITINIB
     Dosage: 30 MG
     Dates: start: 20210530
  2. CREMAFFIN PLUS [Concomitant]
     Indication: CONSTIPATION
     Dosage: 10 ML PO OD HS/SOS
     Route: 048
  3. MUCOPAIN [Concomitant]
  4. DACOMITINIB [Suspect]
     Active Substance: DACOMITINIB
     Dosage: 45 MG ONCE DAILY EMPTY STOMACH X3MONTHS
     Route: 048
     Dates: start: 20210312
  5. FOLIC ACID. [Concomitant]
     Active Substance: FOLIC ACID
     Dosage: 5 MG, DAILY
  6. CANDID MOUTH PAINT [Concomitant]
     Active Substance: CLOTRIMAZOLE
  7. LOMOTIL [LOPERAMIDE HYDROCHLORIDE] [Concomitant]
     Active Substance: LOPERAMIDE HYDROCHLORIDE
     Indication: DIARRHOEA
     Dosage: 1 DF, DAILY (QDS/SOS)

REACTIONS (5)
  - Stomatitis [Unknown]
  - Drug intolerance [Unknown]
  - Fatigue [Unknown]
  - Decreased appetite [Unknown]
  - Diarrhoea [Unknown]
